FAERS Safety Report 10435673 (Version 2)
Quarter: 2014Q3

REPORT INFORMATION
  Report Type: Spontaneous
  Country: US (occurrence: US)
  Receive Date: 20140908
  Receipt Date: 20140908
  Transmission Date: 20150326
  Serious: Yes (Hospitalization, Other)
  Sender: FDA-Public Use
  Company Number: PHEH2014US014609

PATIENT
  Age: 13 Year
  Sex: Male
  Weight: 38.6 kg

DRUGS (21)
  1. LACTULOSE. [Concomitant]
     Active Substance: LACTULOSE
     Indication: CONSTIPATION
     Dosage: 2 TSP, BID
  2. ALBUTEROL. [Concomitant]
     Active Substance: ALBUTEROL
     Indication: BRONCHIAL DISORDER
     Dosage: 0.083 %, Q4H AS NEEDED
  3. CREON 24000 [Concomitant]
     Indication: PANCREATIC ENZYME ABNORMALITY
     Dosage: 4/MEALS 2/SNACKS 4/TUBE FEEDS
  4. VEST [Concomitant]
     Dosage: 21-30 MIN 3-4 TIMES DAILY
  5. ZETONNA [Concomitant]
     Active Substance: CICLESONIDE
     Dosage: 1 DF(1 SQUIRTS), EACH NOSTRIL DAILY
  6. PROAIR HFA [Concomitant]
     Active Substance: ALBUTEROL SULFATE
     Indication: BRONCHIAL DISORDER
     Dosage: 2 DF, DAILY PRN FOR SUMMER
  7. TOBI [Concomitant]
     Active Substance: TOBRAMYCIN
     Dosage: 300 MG, BID 28 DAYS ON/28 DAYS OFF
  8. DEXAMETHASONE. [Concomitant]
     Active Substance: DEXAMETHASONE
     Dosage: 2 DF(2 SQUIRTS EACH SIDE DAILY)
  9. FOCALIN XR [Concomitant]
     Active Substance: DEXMETHYLPHENIDATE HYDROCHLORIDE
     Dosage: 10 MG, DAILY
     Route: 048
  10. HYPERTONIC SALINE SOLUTION [Concomitant]
     Active Substance: SODIUM CHLORIDE
     Indication: FLUID REPLACEMENT
     Dosage: 7 %, BID
  11. PEDIASURE [Concomitant]
     Active Substance: VITAMINS
     Dosage: 90 ML/HR TIMES 9 HRS (4 CANS THROUGH G-TUBE AT BEDTIME)
  12. TOBI PODHALER [Suspect]
     Active Substance: TOBRAMYCIN
     Indication: CYSTIC FIBROSIS
     Dosage: 4 DF, BID
     Route: 055
     Dates: start: 20130928, end: 20140519
  13. VIT E//TOCOPHEROL [Concomitant]
     Indication: VITAMIN E DEFICIENCY
     Dosage: 400 U, DAILY
  14. ZITHROMAX [Concomitant]
     Active Substance: AZITHROMYCIN DIHYDRATE
     Indication: INFLAMMATION
     Dosage: 250 MG, 1 DAILY M-W-F
  15. TOBI PODHALER [Suspect]
     Active Substance: TOBRAMYCIN
     Indication: PSEUDOMONAS INFECTION
  16. PREVACID [Concomitant]
     Active Substance: LANSOPRAZOLE
     Indication: GASTROOESOPHAGEAL REFLUX DISEASE
     Dosage: 15 MG, BID
  17. MIRALAX [Concomitant]
     Active Substance: POLYETHYLENE GLYCOL 3350
     Indication: GASTROINTESTINAL MOTILITY DISORDER
     Dosage: 1 DF, DAILY
  18. PERIACTIN [Concomitant]
     Active Substance: CYPROHEPTADINE HYDROCHLORIDE
     Indication: DECREASED APPETITE
     Dosage: 2 TSP, QID
  19. AQUADEKS [Concomitant]
     Indication: CYSTIC FIBROSIS
     Dosage: UKN, BID
     Route: 048
  20. PULMOZYME [Concomitant]
     Active Substance: DORNASE ALFA
     Indication: FLUID REPLACEMENT
     Dosage: 2.5 MG, DAILY
  21. OCEAN SALINE NASAL SPRAY [Concomitant]
     Active Substance: SODIUM CHLORIDE
     Indication: NASAL IRRIGATION
     Dosage: UKN, PRN

REACTIONS (17)
  - Breath sounds abnormal [Unknown]
  - Scar [Unknown]
  - Cough [Unknown]
  - Drug ineffective [Not Recovered/Not Resolved]
  - Nasal polyps [Unknown]
  - Upper-airway cough syndrome [Unknown]
  - Clubbing [Unknown]
  - Crepitations [Unknown]
  - Infective pulmonary exacerbation of cystic fibrosis [Unknown]
  - Oxygen saturation decreased [Unknown]
  - Pancreatic insufficiency [Unknown]
  - Blood pressure diastolic decreased [Unknown]
  - Erythema [Unknown]
  - Gastrointestinal sounds abnormal [Unknown]
  - Dyspnoea [Unknown]
  - Forced expiratory volume decreased [Unknown]
  - Cystic fibrosis [Unknown]

NARRATIVE: CASE EVENT DATE: 20140605
